APPROVED DRUG PRODUCT: LYRICA CR
Active Ingredient: PREGABALIN
Strength: 330MG
Dosage Form/Route: TABLET, EXTENDED RELEASE;ORAL
Application: N209501 | Product #003 | TE Code: AB
Applicant: UPJOHN US 2 LLC
Approved: Oct 11, 2017 | RLD: Yes | RS: Yes | Type: RX

PATENTS:
Patent 10022447 | Expires: Nov 2, 2026
Patent 10022447 | Expires: Nov 2, 2026
Patent 8945620 | Expires: Nov 2, 2026
Patent 8945620 | Expires: Nov 2, 2026
Patent 9144559 | Expires: Nov 2, 2026
Patent 9144559*PED | Expires: May 2, 2027
Patent 10022447*PED | Expires: May 2, 2027
Patent 8945620*PED | Expires: May 2, 2027